FAERS Safety Report 5014252-0 (Version None)
Quarter: 2006Q2

REPORT INFORMATION
  Report Type: 
  Country: None (occurrence: None)
  Receive Date: 20060414
  Receipt Date: 20051215
  Transmission Date: 20061013
  Serious: No
  Sender: FDA-Public Use
  Company Number: 2005SP004416

PATIENT
  Age: 81 Year
  Sex: Female
  Weight: 45.3597 kg

DRUGS (2)
  1. LUNESTA [Suspect]
     Indication: INSOMNIA
     Dosage: 1 MG; PRN; ORAL
     Route: 048
     Dates: start: 20051115, end: 20051225
  2. TYLENOL (CAPLET) [Concomitant]

REACTIONS (1)
  - VISUAL ACUITY REDUCED [None]
